FAERS Safety Report 5021300-0 (Version None)
Quarter: 2006Q2

REPORT INFORMATION
  Report Type: 
  Country: None (occurrence: None)
  Receive Date: 20060608
  Receipt Date: 20060602
  Transmission Date: 20061013
  Serious: Yes (Hospitalization)
  Sender: FDA-Public Use
  Company Number: FR-GLAXOSMITHKLINE-B0426283A

PATIENT
  Age: 87 Year
  Sex: Male
  Weight: 57 kg

DRUGS (4)
  1. AUGMENTIN '125' [Suspect]
     Indication: TRACHEOBRONCHITIS
     Dosage: 2G PER DAY
     Route: 048
     Dates: start: 20060321, end: 20060326
  2. BRONCHOKOD [Suspect]
     Indication: TRACHEOBRONCHITIS
     Route: 048
     Dates: start: 20060321, end: 20060326
  3. DOLIPRANE [Suspect]
     Indication: TRACHEOBRONCHITIS
     Dosage: 4G PER DAY
     Route: 048
     Dates: start: 20060321, end: 20060326
  4. FELDENE [Suspect]
     Indication: BACK PAIN
     Dosage: 20MG PER DAY
     Route: 030
     Dates: start: 20060301, end: 20060306

REACTIONS (12)
  - ALANINE AMINOTRANSFERASE INCREASED [None]
  - ASPARTATE AMINOTRANSFERASE INCREASED [None]
  - BLOOD ALKALINE PHOSPHATASE INCREASED [None]
  - BLOOD BILIRUBIN INCREASED [None]
  - BLOOD CREATININE INCREASED [None]
  - CYTOLYTIC HEPATITIS [None]
  - EPSTEIN-BARR VIRUS ANTIBODY POSITIVE [None]
  - GAMMA-GLUTAMYLTRANSFERASE INCREASED [None]
  - JAUNDICE [None]
  - PRURITUS [None]
  - RENAL FAILURE [None]
  - WEIGHT DECREASED [None]
